FAERS Safety Report 7454820-X (Version None)
Quarter: 2011Q2

REPORT INFORMATION
  Report Type: 
  Country: None (occurrence: None)
  Receive Date: 20110503
  Receipt Date: 20100615
  Transmission Date: 20111010
  Serious: Yes (Other)
  Sender: FDA-Public Use
  Company Number: US-PFIZER INC-2010058808

PATIENT
  Sex: Female
  Weight: 57.596 kg

DRUGS (3)
  1. XANAX [Concomitant]
     Dosage: 0.5 MG, 1X/DAY
  2. DEPO-PROVERA [Suspect]
     Indication: CONTRACEPTION
     Dosage: 150 MG, SINGLE
     Route: 030
     Dates: start: 20100413, end: 20100413
  3. ZOLOFT [Concomitant]
     Indication: POSTPARTUM DEPRESSION
     Dosage: 100 MG, 1X/DAY
     Dates: start: 20100101

REACTIONS (3)
  - DIARRHOEA [None]
  - RASH PRURITIC [None]
  - DEPRESSION [None]
